FAERS Safety Report 4746464-5 (Version None)
Quarter: 2005Q3

REPORT INFORMATION
  Report Type: 
  Country: None (occurrence: None)
  Receive Date: 20050816
  Receipt Date: 20050816
  Transmission Date: 20060218
  Serious: No
  Sender: FDA-Public Use
  Company Number: None

PATIENT
  Sex: Male
  Weight: 118.8424 kg

DRUGS (7)
  1. CRESTOR [Suspect]
     Indication: HYPERCHOLESTEROLAEMIA
     Dosage: 20 MG PO QHS
     Route: 048
     Dates: start: 20040409, end: 20050708
  2. TESTIM GEL [Concomitant]
  3. AVANAMET [Concomitant]
  4. ASPIRIN [Concomitant]
  5. CIALIS [Concomitant]
  6. ZIAC [Concomitant]
  7. BENICAR [Concomitant]

REACTIONS (1)
  - BLOOD CREATININE INCREASED [None]
